FAERS Safety Report 9415531 (Version 1)
Quarter: 2013Q3

REPORT INFORMATION
  Report Type: Spontaneous
  Country: DE (occurrence: DE)
  Receive Date: 20130723
  Receipt Date: 20130723
  Transmission Date: 20140515
  Serious: Yes (Life-Threatening, Other)
  Sender: FDA-Public Use
  Company Number: DE-AMGEN-DEUSP2013050883

PATIENT
  Age: 66 Year
  Sex: Male
  Weight: 90 kg

DRUGS (2)
  1. ENBREL [Suspect]
     Indication: RHEUMATOID ARTHRITIS
     Dosage: 25 MG, 2 TIMES/WK
     Route: 058
     Dates: start: 2003, end: 201307
  2. URBASON                            /00049601/ [Concomitant]
     Indication: RHEUMATOID ARTHRITIS
     Dosage: 2 MG, 1X/DAY
     Route: 048
     Dates: start: 2003

REACTIONS (2)
  - Chronic myeloid leukaemia [Not Recovered/Not Resolved]
  - Intertrigo [Unknown]
